FAERS Safety Report 13832284 (Version 1)
Quarter: 2017Q3

REPORT INFORMATION
  Report Type: Spontaneous
  Country: PR (occurrence: PR)
  Receive Date: 20170804
  Receipt Date: 20170804
  Transmission Date: 20171127
  Serious: No
  Sender: FDA-Public Use
  Company Number: PR-PFIZER INC-2017337844

PATIENT
  Age: 45 Year
  Sex: Female
  Weight: 95 kg

DRUGS (11)
  1. NEURONTIN [Suspect]
     Active Substance: GABAPENTIN
     Indication: PAIN IN EXTREMITY
  2. BACLOFEN. [Concomitant]
     Active Substance: BACLOFEN
     Dosage: 10 MG
  3. BUPROPION HCL ER [Concomitant]
     Active Substance: BUPROPION HYDROCHLORIDE
     Dosage: 150 MG
  4. PROSOM [Concomitant]
     Active Substance: ESTAZOLAM
     Dosage: 2 MG
  5. AUBAGIO [Concomitant]
     Active Substance: TERIFLUNOMIDE
     Dosage: 14 MG
  6. ALPRAZOLAM. [Concomitant]
     Active Substance: ALPRAZOLAM
     Dosage: 1 MG
  7. RISPERDAL [Concomitant]
     Active Substance: RISPERIDONE
  8. PRILOSEC [Concomitant]
     Active Substance: OMEPRAZOLE MAGNESIUM
     Dosage: 20 MG
  9. ZANTAC [Concomitant]
     Active Substance: RANITIDINE HYDROCHLORIDE
     Dosage: 150 MG
  10. NEURONTIN [Suspect]
     Active Substance: GABAPENTIN
     Indication: HYPOAESTHESIA
     Dosage: 1X/DAY
  11. NEURONTIN [Suspect]
     Active Substance: GABAPENTIN
     Indication: SEIZURE

REACTIONS (3)
  - Product use in unapproved indication [Unknown]
  - Pruritus generalised [Unknown]
  - Drug hypersensitivity [Unknown]
